FAERS Safety Report 6457572-5 (Version None)
Quarter: 2009Q4

REPORT INFORMATION
  Report Type: 
  Country: None (occurrence: None)
  Receive Date: 20091125
  Receipt Date: 20091117
  Transmission Date: 20100525
  Serious: Yes (Other)
  Sender: FDA-Public Use
  Company Number: PHHY2009FR51072

PATIENT
  Age: 26 Year
  Sex: Female

DRUGS (3)
  1. RITALIN [Suspect]
  2. CLOMIPRAMINE [Suspect]
  3. XYREM [Suspect]

REACTIONS (3)
  - CONFUSIONAL STATE [None]
  - HYPERHIDROSIS [None]
  - SOMNAMBULISM [None]
